FAERS Safety Report 13945894 (Version 2)
Quarter: 2017Q4

REPORT INFORMATION
  Report Type: Report from Study
  Country: GB (occurrence: GB)
  Receive Date: 20170907
  Receipt Date: 20171204
  Transmission Date: 20180320
  Serious: Yes (Hospitalization)
  Sender: FDA-Public Use
  Company Number: GB-ROCHE-ITM201505IM016800

PATIENT
  Age: 71 Year
  Sex: Male

DRUGS (3)
  1. ESBRIET [Suspect]
     Active Substance: PIRFENIDONE
     Indication: IDIOPATHIC PULMONARY FIBROSIS
     Dosage: 801 MG
     Route: 048
     Dates: start: 20140901
  2. ESBRIET [Suspect]
     Active Substance: PIRFENIDONE
     Route: 048
  3. ESBRIET [Suspect]
     Active Substance: PIRFENIDONE
     Route: 048

REACTIONS (39)
  - Arthropod bite [Unknown]
  - Pain [Not Recovered/Not Resolved]
  - Upper limb fracture [Unknown]
  - Gastric infection [Unknown]
  - Malaise [Unknown]
  - Gastric disorder [Not Recovered/Not Resolved]
  - Constipation [Not Recovered/Not Resolved]
  - Drug dose omission [Unknown]
  - Lethargy [Not Recovered/Not Resolved]
  - Cough [Not Recovered/Not Resolved]
  - Abdominal distension [Not Recovered/Not Resolved]
  - Choking [Not Recovered/Not Resolved]
  - Sleep disorder [Not Recovered/Not Resolved]
  - Nausea [Recovered/Resolved]
  - Pruritus [Recovered/Resolved]
  - Rash erythematous [Recovered/Resolved]
  - Lower respiratory tract infection [Recovered/Resolved]
  - Ill-defined disorder [Not Recovered/Not Resolved]
  - Infection [Unknown]
  - Oxygen saturation decreased [Unknown]
  - Dysgeusia [Unknown]
  - Infection [Not Recovered/Not Resolved]
  - Gastroenteritis [Unknown]
  - Gastrooesophageal reflux disease [Unknown]
  - Diarrhoea [Recovered/Resolved]
  - Weight decreased [Unknown]
  - Fear [Unknown]
  - Secretion discharge [Not Recovered/Not Resolved]
  - Food aversion [Unknown]
  - Parosmia [Unknown]
  - Nausea [Not Recovered/Not Resolved]
  - Fall [Unknown]
  - Cough [Not Recovered/Not Resolved]
  - Dyspnoea [Not Recovered/Not Resolved]
  - Insomnia [Unknown]
  - Gait disturbance [Not Recovered/Not Resolved]
  - Feeding disorder [Recovering/Resolving]
  - General physical health deterioration [Not Recovered/Not Resolved]
  - Depression [Unknown]

NARRATIVE: CASE EVENT DATE: 20150501
